FAERS Safety Report 5070345-3 (Version None)
Quarter: 2006Q3

REPORT INFORMATION
  Report Type: 
  Country: None (occurrence: None)
  Receive Date: 20060731
  Receipt Date: 20060710
  Transmission Date: 20061208
  Serious: Yes (Death, Disabling)
  Sender: FDA-Public Use
  Company Number: 2004195924JP

PATIENT
  Age: 76 Year
  Sex: Male

DRUGS (13)
  1. CAMPTOSAR [Suspect]
     Indication: SMALL CELL LUNG CANCER STAGE UNSPECIFIED
     Dosage: 90 MG (INTERMITTENT), INTRAVENOUS
     Route: 042
     Dates: start: 20030819, end: 20031002
  2. CISPLATIN [Suspect]
     Indication: SMALL CELL LUNG CANCER STAGE UNSPECIFIED
     Dosage: 90 MG (INTERMITTENT), INTRAVENOUS, 130 MG (INTERMITTENT); INTRAVENOUS
     Route: 042
     Dates: start: 20030819, end: 20030925
  3. CISPLATIN [Suspect]
     Indication: SMALL CELL LUNG CANCER STAGE UNSPECIFIED
     Dosage: 90 MG (INTERMITTENT), INTRAVENOUS, 130 MG (INTERMITTENT); INTRAVENOUS
     Route: 042
     Dates: start: 20031030, end: 20031030
  4. VEPESID [Suspect]
     Indication: SMALL CELL LUNG CANCER STAGE UNSPECIFIED
     Dosage: 160 MG, INTRAVENOUS
     Route: 042
     Dates: start: 20031030, end: 20031101
  5. CALSED (AMRUBICIN HYDROCHLORIDE) [Suspect]
     Indication: SMALL CELL LUNG CANCER STAGE UNSPECIFIED
     Dosage: 62 MG, INTRAVENOUS
     Route: 042
     Dates: start: 20031204, end: 20031206
  6. HANGE-SHASHIN-TO (HERBAL PREPARATION) [Suspect]
     Indication: DIARRHOEA
     Dosage: 7.5 GRAM; ORAL
     Route: 048
     Dates: start: 20030917, end: 20031128
  7. NEUTROGIN (LENOGRASTIM) [Suspect]
     Indication: PROPHYLAXIS
     Dosage: 100 MCG, SUBCUTANEOUS
     Route: 058
     Dates: start: 20031003, end: 20031221
  8. MARUYAMA VACCINE (TUBERCULIN) [Concomitant]
  9. HALCION [Concomitant]
  10. MS CONTIN [Concomitant]
  11. NASEA (RAMOSETRON HYDROCHLORIDE) [Concomitant]
  12. ONDANSETRON HCL [Concomitant]
  13. LOXONIN(LOXOPROFEN SODIUM) [Suspect]
     Indication: PAIN
     Dosage: ORAL
     Route: 048
     Dates: start: 20031016, end: 20031229

REACTIONS (10)
  - CHEYNE-STOKES RESPIRATION [None]
  - COMA [None]
  - DEPRESSED LEVEL OF CONSCIOUSNESS [None]
  - INTERSTITIAL LUNG DISEASE [None]
  - MALIGNANT NEOPLASM PROGRESSION [None]
  - MALIGNANT PLEURAL EFFUSION [None]
  - METASTASES TO LUNG [None]
  - METASTASES TO SPINE [None]
  - RESPIRATORY FAILURE [None]
  - TERMINAL STATE [None]
